FAERS Safety Report 14319888 (Version 2)
Quarter: 2017Q4

REPORT INFORMATION
  Report Type: Spontaneous
  Country: BR (occurrence: BR)
  Receive Date: 20171222
  Receipt Date: 20171227
  Transmission Date: 20180321
  Serious: Yes (Death, Hospitalization)
  Sender: FDA-Public Use
  Company Number: BR-BIOMARINAP-BR-2017-116535

PATIENT
  Sex: Female
  Weight: 18 kg

DRUGS (1)
  1. ALDURAZYME [Suspect]
     Active Substance: LARONIDASE
     Indication: PRODUCT USED FOR UNKNOWN INDICATION
     Dosage: UNK, QW
     Route: 041

REACTIONS (7)
  - Brain oedema [Unknown]
  - Irritability [Unknown]
  - Hypotension [Fatal]
  - Agitation [Unknown]
  - Seizure [Fatal]
  - Cardio-respiratory arrest [Fatal]
  - Dyspnoea [Fatal]
